FAERS Safety Report 10587516 (Version 1)
Quarter: 2014Q4

REPORT INFORMATION
  Report Type: Spontaneous
  Country: US (occurrence: US)
  Receive Date: 20141117
  Receipt Date: 20141117
  Transmission Date: 20150529
  Serious: No
  Sender: FDA-Public Use
  Company Number: US-BAYER-2014-168702

PATIENT
  Age: 35 Year
  Sex: Female

DRUGS (2)
  1. GADAVIST [Suspect]
     Active Substance: GADOBUTROL
     Dosage: UNK
     Dates: start: 201410
  2. GADAVIST [Suspect]
     Active Substance: GADOBUTROL
     Dosage: 6.5 ML (CC), ONCE

REACTIONS (4)
  - Drug hypersensitivity [None]
  - Pruritus [None]
  - Medication error [None]
  - Pruritus [None]

NARRATIVE: CASE EVENT DATE: 201410
